FAERS Safety Report 14967055 (Version 1)
Quarter: 2018Q2

REPORT INFORMATION
  Report Type: Spontaneous
  Country: JP (occurrence: JP)
  Receive Date: 20180604
  Receipt Date: 20180604
  Transmission Date: 20180711
  Serious: Yes (Disabling, Other)
  Sender: FDA-Public Use
  Company Number: JP-CHEPLA-C20180312_02

PATIENT
  Sex: Male
  Weight: 2.07 kg

DRUGS (2)
  1. VESANOID [Suspect]
     Active Substance: TRETINOIN
     Indication: ACUTE PROMYELOCYTIC LEUKAEMIA
     Route: 048
  2. IDARUBICIN [Concomitant]
     Active Substance: IDARUBICIN
     Indication: ACUTE PROMYELOCYTIC LEUKAEMIA

REACTIONS (6)
  - Neonatal respiratory distress syndrome [Unknown]
  - Maternal drugs affecting foetus [None]
  - Caesarean section [None]
  - Premature baby [None]
  - Foetal exposure during pregnancy [Recovered/Resolved]
  - Premature baby [Recovered/Resolved]
